FAERS Safety Report 22669904 (Version 3)
Quarter: 2023Q4

REPORT INFORMATION
  Report Type: Spontaneous
  Country: NL (occurrence: NL)
  Receive Date: 20230704
  Receipt Date: 20231026
  Transmission Date: 20240109
  Serious: Yes (Other)
  Sender: FDA-Public Use
  Company Number: NL-CHIESI-2023CHF03086

PATIENT
  Age: 9 Year
  Sex: Male

DRUGS (17)
  1. DESLORATADINE [Suspect]
     Active Substance: DESLORATADINE
     Indication: Asthma
     Dosage: 2.5 MILLIGRAM, PRN
     Route: 048
     Dates: start: 20230320
  2. METOCLOPRAMIDE [Suspect]
     Active Substance: METOCLOPRAMIDE
     Indication: Nausea
     Dosage: 12 MILLIGRAM, PRN
     Route: 048
     Dates: start: 20230301
  3. FLUTICASONE FUROATE [Suspect]
     Active Substance: FLUTICASONE FUROATE
     Indication: Asthma
     Dosage: 1 DOSAGE FORM
     Route: 045
     Dates: start: 20230320
  4. ARIPIPRAZOLE [Suspect]
     Active Substance: ARIPIPRAZOLE
     Indication: Autism spectrum disorder
     Dosage: 2.5 MILLIGRAM
     Route: 048
     Dates: start: 20230331
  5. ALBUTEROL [Suspect]
     Active Substance: ALBUTEROL
     Indication: Asthma
     Dosage: UNK (ROUTE: RESPIRATORY INHALATION)
     Dates: start: 20230320
  6. ALBUTEROL [Suspect]
     Active Substance: ALBUTEROL
     Dosage: UNK, PRN, (1 - 4 DOSES, 8X/DAY, IF NECESSARY)
     Dates: start: 20230320
  7. CRIZOTINIB [Suspect]
     Active Substance: CRIZOTINIB
     Indication: Neoplasm malignant
     Dosage: 220 MILLIGRAM, BID
     Route: 048
     Dates: start: 20230211, end: 20230523
  8. CRIZOTINIB [Suspect]
     Active Substance: CRIZOTINIB
     Dosage: 220 MILLIGRAM, BID
     Route: 065
     Dates: start: 20230211, end: 20230523
  9. CRIZOTINIB [Suspect]
     Active Substance: CRIZOTINIB
     Dosage: 200 MILLIGRAM/SQ. METER
     Route: 065
  10. MELATONIN [Suspect]
     Active Substance: MELATONIN
     Indication: Autism spectrum disorder
     Dosage: 0.5 MILLIGRAM
     Route: 048
     Dates: start: 20230320
  11. BECLOMETHASONE DIPROPIONATE [Suspect]
     Active Substance: BECLOMETHASONE DIPROPIONATE
     Indication: Asthma
     Dosage: 2 DOSAGE FORM, BID (ROUTE: RESPIRATORY INHALATION)
     Dates: start: 20230320
  12. POLYETHYLENE GLYCOLS [Suspect]
     Active Substance: POLYETHYLENE GLYCOLS
     Indication: Constipation
     Dosage: UNK
     Route: 048
     Dates: start: 20230320
  13. POLYETHYLENE GLYCOLS [Suspect]
     Active Substance: POLYETHYLENE GLYCOLS
     Dosage: UNK, 10-20 GRAM
     Route: 048
     Dates: start: 20230320
  14. GRANISETRON HYDROCHLORIDE [Suspect]
     Active Substance: GRANISETRON HYDROCHLORIDE
     Indication: Nausea
     Dosage: 2 MILLIGRAM, PRN
     Route: 048
     Dates: start: 20230508
  15. CHOLECALCIFEROL [Suspect]
     Active Substance: CHOLECALCIFEROL
     Indication: Prophylaxis
     Dosage: 400 INTERNATIONAL UNIT
     Route: 048
     Dates: start: 20230320
  16. KLYSMA SORBIT [Concomitant]
     Indication: Constipation
     Dosage: UNK
     Route: 054
     Dates: start: 20230327
  17. KLYSMA SORBIT [Concomitant]
     Dosage: UNK
     Route: 065
     Dates: start: 20230327

REACTIONS (1)
  - Sinus bradycardia [Not Recovered/Not Resolved]

NARRATIVE: CASE EVENT DATE: 20230522
